FAERS Safety Report 9590898 (Version 1)
Quarter: 2013Q4

REPORT INFORMATION
  Report Type: Spontaneous
  Country: US (occurrence: US)
  Receive Date: 20131003
  Receipt Date: 20131003
  Transmission Date: 20140711
  Serious: No
  Sender: FDA-Public Use
  Company Number: US-AMGEN-USASP2012070506

PATIENT
  Age: 30 Year
  Sex: Male

DRUGS (8)
  1. ENBREL [Suspect]
     Indication: PRODUCT USED FOR UNKNOWN INDICATION
     Dosage: 50 MG, QWK
     Route: 058
  2. ZYRTEC [Concomitant]
     Dosage: 10 MG, UNK
  3. CELEBREX [Concomitant]
     Dosage: 100 MG, UNK
  4. MULTIVITAMINS, PLAIN [Concomitant]
     Dosage: UNK
  5. GLUCOSAMIN                         /00943602/ [Concomitant]
     Dosage: 1000 MG, UNK
  6. AMITRIPTYLIN [Concomitant]
     Dosage: 25 MG, UNK
  7. ULTRAM ER [Concomitant]
     Dosage: 100 MG, UNK
  8. INDERAL [Concomitant]
     Dosage: 10 MG, UNK

REACTIONS (1)
  - Insomnia [Unknown]
